FAERS Safety Report 8098461-2 (Version None)
Quarter: 2012Q1

REPORT INFORMATION
  Report Type: 
  Country: None (occurrence: None)
  Receive Date: 20120129
  Receipt Date: 20110912
  Transmission Date: 20120608
  Serious: No
  Sender: FDA-Public Use
  Company Number: US-ABBOTT-11P-163-0854573-00

PATIENT
  Sex: Male

DRUGS (4)
  1. METHOTREXATE [Suspect]
     Indication: PRODUCT USED FOR UNKNOWN INDICATION
  2. HUMIRA [Suspect]
     Indication: RHEUMATOID ARTHRITIS
     Route: 058
     Dates: start: 20090101
  3. IBUPROFEN (ADVIL) [Concomitant]
     Indication: BACK PAIN
  4. NAPROXEN (ALEVE) [Concomitant]
     Indication: BACK PAIN

REACTIONS (4)
  - RASH MACULAR [None]
  - DRUG INEFFECTIVE [None]
  - ARTHRALGIA [None]
  - BACK PAIN [None]
